FAERS Safety Report 18441625 (Version 2)
Quarter: 2020Q4

REPORT INFORMATION
  Report Type: Report from Study
  Country: CO (occurrence: CO)
  Receive Date: 20201029
  Receipt Date: 20201112
  Transmission Date: 20210114
  Serious: Yes (Hospitalization, Other)
  Sender: FDA-Public Use
  Company Number: CO-SA-2018SA322471

PATIENT

DRUGS (2)
  1. ALEMTUZUMAB [Suspect]
     Active Substance: ALEMTUZUMAB
     Indication: MULTIPLE SCLEROSIS
     Dosage: 12 MG, QD
     Route: 041
     Dates: start: 20181017, end: 20181019
  2. BISACODYL. [Concomitant]
     Active Substance: BISACODYL
     Indication: CONSTIPATION
     Dosage: UNK, QD
     Route: 048

REACTIONS (15)
  - Urobilinogen urine increased [Recovered/Resolved]
  - Protein urine present [Recovered/Resolved]
  - Cough [Recovered/Resolved]
  - Bacteriuria [Recovered/Resolved]
  - Red blood cells urine positive [Recovered/Resolved]
  - Pyrexia [Recovered/Resolved]
  - Thrombocytopenia [Not Recovered/Not Resolved]
  - Puncture site haematoma [Recovered/Resolved]
  - Leukocyturia [Not Recovered/Not Resolved]
  - Influenza [Recovered/Resolved]
  - Urinary tract infection [Recovered/Resolved]
  - Blood creatinine decreased [Recovered/Resolved]
  - Petechiae [Recovered/Resolved]
  - Platelet count decreased [Not Recovered/Not Resolved]
  - Lymphocyte count decreased [Recovered/Resolved]

NARRATIVE: CASE EVENT DATE: 20181120
